FAERS Safety Report 10494983 (Version 1)
Quarter: 2014Q3

REPORT INFORMATION
  Report Type: Spontaneous
  Country: US (occurrence: None)
  Receive Date: 20140815
  Receipt Date: 20140815
  Transmission Date: 20150326
  Serious: Yes (Other)
  Sender: FDA-Public Use
  Company Number: ADR-2014-01002

PATIENT
  Age: 56 Year
  Sex: Male

DRUGS (13)
  1. IRON-VITAMIN B [Suspect]
     Active Substance: IRON\VITAMIN B COMPLEX
  2. MULTI-VITAMIN [Suspect]
     Active Substance: .ALPHA.-TOCOPHEROL ACETATE, DL-\ASCORBIC ACID\CYANOCOBALAMIN\FLUORIDE ION\FOLIC ACID\NIACIN\PYRIDOXINE\RIBOFLAVIN\THIAMINE\VITAMIN A\VITAMIN D
  3. NIACIN. [Suspect]
     Active Substance: NIACIN
  4. GABAPENTIN. [Suspect]
     Active Substance: GABAPENTIN
  5. DITROPAN [Suspect]
     Active Substance: OXYBUTYNIN CHLORIDE
  6. BACTRIM [Suspect]
     Active Substance: SULFAMETHOXAZOLE\TRIMETHOPRIM
  7. VITAMIN D [Suspect]
     Active Substance: CHOLECALCIFEROL
  8. COLACE [Suspect]
     Active Substance: DOCUSATE SODIUM
  9. TAMBOCOR [Suspect]
     Active Substance: FLECAINIDE ACETATE
  10. COMPOUNDED BACLOFEN INTRATHECAL 2000MCG/ML [Suspect]
     Active Substance: BACLOFEN
     Indication: MUSCLE SPASTICITY
  11. VITAMIN C [Suspect]
     Active Substance: ASCORBIC ACID
  12. VALIUM [Suspect]
     Active Substance: DIAZEPAM
  13. ZOCOR [Suspect]
     Active Substance: SIMVASTATIN

REACTIONS (3)
  - Muscle spasticity [None]
  - No therapeutic response [None]
  - Pain [None]
